FAERS Safety Report 13585996 (Version 1)
Quarter: 2017Q2

REPORT INFORMATION
  Report Type: Spontaneous
  Country: US (occurrence: US)
  Receive Date: 20170526
  Receipt Date: 20170526
  Transmission Date: 20170830
  Serious: Yes (Hospitalization)
  Sender: FDA-Public Use
  Company Number: US-ELI_LILLY_AND_COMPANY-US201705007699

PATIENT
  Sex: Female

DRUGS (8)
  1. HUMALOG [Suspect]
     Active Substance: INSULIN LISPRO
     Indication: PRODUCT USED FOR UNKNOWN INDICATION
     Dosage: 10 U, EACH MORNING
     Route: 058
     Dates: start: 2015
  2. HUMALOG [Suspect]
     Active Substance: INSULIN LISPRO
     Dosage: 18 U, EACH EVENING
     Route: 058
  3. HUMALOG [Suspect]
     Active Substance: INSULIN LISPRO
     Dosage: 22 U, EACH MORNING
     Route: 058
  4. HUMALOG [Suspect]
     Active Substance: INSULIN LISPRO
     Dosage: 22 U, EACH MORNING
     Route: 058
  5. HUMALOG [Suspect]
     Active Substance: INSULIN LISPRO
     Dosage: 18 U, EACH EVENING
     Route: 058
  6. HUMALOG [Suspect]
     Active Substance: INSULIN LISPRO
     Dosage: 8 U, EACH EVENING
     Route: 058
     Dates: start: 2015
  7. PROCRIT [Concomitant]
     Active Substance: ERYTHROPOIETIN
     Indication: PRODUCT USED FOR UNKNOWN INDICATION
     Dosage: UNK, UNKNOWN
     Route: 065
  8. JARDIANCE [Suspect]
     Active Substance: EMPAGLIFLOZIN
     Indication: PRODUCT USED FOR UNKNOWN INDICATION
     Dosage: UNK, UNKNOWN
     Route: 065

REACTIONS (9)
  - Blood glucose increased [Unknown]
  - Renal disorder [Unknown]
  - Chronic kidney disease [Unknown]
  - Vascular procedure complication [Unknown]
  - Urinary tract infection [Recovered/Resolved]
  - Venous occlusion [Unknown]
  - Hypersomnia [Unknown]
  - Amnesia [Unknown]
  - General physical health deterioration [Unknown]
